FAERS Safety Report 24140969 (Version 1)
Quarter: 2024Q3

REPORT INFORMATION
  Report Type: Report from Study
  Country: CA (occurrence: None)
  Receive Date: 20240726
  Receipt Date: 20240726
  Transmission Date: 20241016
  Serious: Yes (Other)
  Sender: ASTRAZENECA
  Company Number: 2024A164910

PATIENT
  Sex: Male

DRUGS (2)
  1. LYNPARZA [Suspect]
     Active Substance: OLAPARIB
     Indication: Breast cancer male
     Route: 048
     Dates: start: 20240209
  2. LYNPARZA [Suspect]
     Active Substance: OLAPARIB
     Indication: Breast cancer male
     Route: 048
     Dates: start: 20240209

REACTIONS (1)
  - Full blood count decreased [Unknown]
